FAERS Safety Report 4801756-6 (Version None)
Quarter: 2005Q4

REPORT INFORMATION
  Report Type: 
  Country: None (occurrence: None)
  Receive Date: 20051018
  Receipt Date: 20050812
  Transmission Date: 20060501
  Serious: Yes (Other)
  Sender: FDA-Public Use
  Company Number: US-AMGEN-US146719

PATIENT
  Sex: Female

DRUGS (7)
  1. ENBREL [Suspect]
     Indication: RHEUMATOID ARTHRITIS
     Route: 058
     Dates: start: 20000428, end: 20040907
  2. METHOTREXATE [Concomitant]
     Route: 048
     Dates: start: 19991207
  3. FOLIC ACID [Concomitant]
  4. ASPIRIN [Concomitant]
  5. ATENOLOL [Concomitant]
  6. PAXIL [Concomitant]
     Dates: start: 20030801
  7. CORTISONE ACETATE TAB [Concomitant]

REACTIONS (4)
  - CONDITION AGGRAVATED [None]
  - IMMUNOSUPPRESSION [None]
  - NON-HODGKIN'S LYMPHOMA STAGE III [None]
  - RHEUMATOID ARTHRITIS [None]
